FAERS Safety Report 24206318 (Version 1)
Quarter: 2024Q3

REPORT INFORMATION
  Report Type: Spontaneous
  Country: US (occurrence: None)
  Receive Date: 20240812
  Receipt Date: 20240812
  Transmission Date: 20241017
  Serious: Yes (Disabling)
  Sender: Public
  Company Number: None

PATIENT
  Age: 18 Year
  Sex: Male
  Weight: 54 kg

DRUGS (3)
  1. LUPRON DEPOT [Suspect]
     Active Substance: LEUPROLIDE ACETATE
     Indication: Gender dysphoria
     Dosage: OTHER QUANTITY : 2 INJECTION(S);?OTHER FREQUENCY : 1X MONTH;?
     Route: 030
     Dates: start: 20240222, end: 20240311
  2. LUPRON DEPOT [Suspect]
     Active Substance: LEUPROLIDE ACETATE
  3. Bicalutimide [Concomitant]

REACTIONS (14)
  - Swelling face [None]
  - Peripheral swelling [None]
  - Peripheral swelling [None]
  - Skin disorder [None]
  - Acanthosis nigricans [None]
  - Pharyngeal swelling [None]
  - Tooth disorder [None]
  - Carpal tunnel syndrome [None]
  - Hypoaesthesia [None]
  - Pain in extremity [None]
  - Pain in extremity [None]
  - Vein disorder [None]
  - Feeling hot [None]
  - Pain in extremity [None]

NARRATIVE: CASE EVENT DATE: 20240311
